APPROVED DRUG PRODUCT: MS CONTIN
Active Ingredient: MORPHINE SULFATE
Strength: 60MG
Dosage Form/Route: TABLET, EXTENDED RELEASE;ORAL
Application: N019516 | Product #002 | TE Code: AB
Applicant: PURDUE PHARMA LP
Approved: Apr 8, 1988 | RLD: Yes | RS: No | Type: RX